FAERS Safety Report 4990187-4 (Version None)
Quarter: 2006Q2

REPORT INFORMATION
  Report Type: 
  Country: None (occurrence: None)
  Receive Date: 20060501
  Receipt Date: 20060501
  Transmission Date: 20061013
  Serious: No
  Sender: FDA-Public Use
  Company Number: None

PATIENT
  Age: 54 Year
  Sex: Female
  Weight: 58.9676 kg

DRUGS (3)
  1. LEXAPRO [Suspect]
     Indication: DEPRESSION
     Dosage: 10MG    1 DAILY   PO
     Route: 048
     Dates: start: 20060407, end: 20060422
  2. LEXAPRO [Suspect]
     Indication: OBSESSIVE-COMPULSIVE DISORDER
     Dosage: 10MG    1 DAILY   PO
     Route: 048
     Dates: start: 20060407, end: 20060422
  3. LEXAPRO [Suspect]
     Indication: PHOBIA
     Dosage: 10MG    1 DAILY   PO
     Route: 048
     Dates: start: 20060407, end: 20060422

REACTIONS (1)
  - CHEST PAIN [None]
